FAERS Safety Report 17966826 (Version 4)
Quarter: 2022Q2

REPORT INFORMATION
  Report Type: Spontaneous
  Country: GB (occurrence: GB)
  Receive Date: 20200701
  Receipt Date: 20220419
  Transmission Date: 20220721
  Serious: Yes (Death, Hospitalization, Congenital Anomaly)
  Sender: FDA-Public Use
  Company Number: GB-JNJFOC-20200634835

PATIENT

DRUGS (10)
  1. IBUPROFEN [Suspect]
     Active Substance: IBUPROFEN
     Indication: Pyrexia
     Route: 064
  2. IBUPROFEN [Suspect]
     Active Substance: IBUPROFEN
     Indication: Pain
  3. ACETAMINOPHEN [Suspect]
     Active Substance: ACETAMINOPHEN
     Indication: Pain
     Route: 064
  4. ACETAMINOPHEN [Suspect]
     Active Substance: ACETAMINOPHEN
     Indication: Pyrexia
  5. ASPIRIN [Suspect]
     Active Substance: ASPIRIN
     Indication: Pain
     Route: 064
  6. ASPIRIN [Suspect]
     Active Substance: ASPIRIN
     Indication: Pyrexia
  7. DICLOFENAC [Suspect]
     Active Substance: DICLOFENAC
     Indication: Pain
     Route: 064
  8. DICLOFENAC [Suspect]
     Active Substance: DICLOFENAC
     Indication: Pyrexia
  9. NAPROXEN [Suspect]
     Active Substance: NAPROXEN
     Indication: Pain
     Route: 064
  10. NAPROXEN [Suspect]
     Active Substance: NAPROXEN
     Indication: Pyrexia

REACTIONS (8)
  - Death neonatal [Fatal]
  - Foetal exposure during pregnancy [Fatal]
  - Neural tube defect [Unknown]
  - Hypospadias [Unknown]
  - Premature delivery [Unknown]
  - Apgar score low [Unknown]
  - Low birth weight baby [Unknown]
  - Large for dates baby [Unknown]
